FAERS Safety Report 10744647 (Version 1)
Quarter: 2015Q1

REPORT INFORMATION
  Report Type: Spontaneous
  Country: US (occurrence: None)
  Receive Date: 20150126
  Receipt Date: 20150126
  Transmission Date: 20150721
  Serious: Yes (Congenital Anomaly, Other)
  Sender: FDA-Public Use
  Company Number: 2015HINOTH0001

PATIENT
  Age: 37 Week
  Sex: Male
  Weight: 3.2 kg

DRUGS (2)
  1. LAMIVUDINE AND ZIDOVUDINE [Suspect]
     Active Substance: LAMIVUDINE\ZIDOVUDINE
     Indication: HIV INFECTION
     Dosage: COURSE 1
     Route: 064
     Dates: start: 20140917
  2. LOPINAVIR+RITONAVIR (KALETRA?, ALUVIA?, LPV/R) (LOPINAVIR+RITONAVIR (KALETRA?, ALUVIA?, LPV/R)) [Concomitant]

REACTIONS (3)
  - Maternal drugs affecting foetus [None]
  - Adrenogenital syndrome [None]
  - Hydronephrosis [None]
